FAERS Safety Report 7277238-1 (Version None)
Quarter: 2011Q1

REPORT INFORMATION
  Report Type: 
  Country: None (occurrence: None)
  Receive Date: 20110202
  Receipt Date: 20110202
  Transmission Date: 20110831
  Serious: Yes (Other)
  Sender: FDA-Public Use
  Company Number: None

PATIENT
  Age: 64 Year
  Sex: Female
  Weight: 68.0396 kg

DRUGS (1)
  1. ABILIFY [Suspect]
     Dosage: 5MG ONCE DAILY PO
     Route: 048
     Dates: start: 20100819, end: 20101123

REACTIONS (1)
  - ILL-DEFINED DISORDER [None]
